FAERS Safety Report 16025713 (Version 1)
Quarter: 2019Q1

REPORT INFORMATION
  Report Type: Report from Study
  Country: DE (occurrence: DE)
  Receive Date: 20190302
  Receipt Date: 20190302
  Transmission Date: 20190418
  Serious: Yes (Death, Life-Threatening, Hospitalization, Other)
  Sender: FDA-Public Use
  Company Number: DE-ACCORD-110215

PATIENT

DRUGS (4)
  1. ALCOHOL. [Interacting]
     Active Substance: ALCOHOL
     Dosage: 1.98 G/L (PAT. 9)
  2. QUETIAPINE. [Suspect]
     Active Substance: QUETIAPINE
     Dosage: 8 G (PAT. 9), NI (PAT. 19), 9 G
  3. ZOPICLONE [Interacting]
     Active Substance: ZOPICLONE
  4. CITALOPRAM [Interacting]
     Active Substance: CITALOPRAM HYDROBROMIDE
     Dosage: 2.8 G (PAT. 9) NI (PAT. 19)

REACTIONS (15)
  - Drug level increased [Unknown]
  - Intentional overdose [Unknown]
  - Cardiac arrest [Fatal]
  - Drug interaction [Unknown]
  - Seizure [Not Recovered/Not Resolved]
  - Delirium [Fatal]
  - Ventricular tachycardia [Fatal]
  - Pulseless electrical activity [Fatal]
  - Coma [Fatal]
  - Heart rate increased [Unknown]
  - Suicide attempt [Fatal]
  - Arrhythmia [Fatal]
  - Overdose [Fatal]
  - Somnolence [Fatal]
  - Pneumonia [Fatal]
